FAERS Safety Report 24817049 (Version 3)
Quarter: 2025Q1

REPORT INFORMATION
  Report Type: Report from Study
  Country: TW (occurrence: TW)
  Receive Date: 20250108
  Receipt Date: 20250304
  Transmission Date: 20250409
  Serious: Yes (Life-Threatening, Hospitalization, Other)
  Sender: JOHNSON AND JOHNSON
  Company Number: TW-JNJFOC-20241289474

PATIENT
  Sex: Male

DRUGS (1)
  1. SIMPONI [Suspect]
     Active Substance: GOLIMUMAB
     Indication: Psoriatic arthropathy
     Route: 058

REACTIONS (5)
  - Discomfort [Unknown]
  - Wheezing [Unknown]
  - Balance disorder [Unknown]
  - Chronic hepatitis [Unknown]
  - Hepatic cirrhosis [Unknown]
